FAERS Safety Report 5703119-8 (Version None)
Quarter: 2008Q2

REPORT INFORMATION
  Report Type: 
  Country: None (occurrence: None)
  Receive Date: 20080411
  Receipt Date: 20080402
  Transmission Date: 20081010
  Serious: Yes (Hospitalization, Other)
  Sender: FDA-Public Use
  Company Number: CA-ROCHE-500536

PATIENT
  Sex: Female
  Weight: 41 kg

DRUGS (14)
  1. MYCOPHENOLATE MOFETIL [Suspect]
     Route: 048
     Dates: start: 20070206, end: 20070323
  2. MYCOPHENOLATE MOFETIL [Suspect]
     Dosage: TEMPORARILY STOPPED
     Route: 048
     Dates: start: 20070501, end: 20070601
  3. MYCOPHENOLATE MOFETIL [Suspect]
     Dosage: FREQUENCY REPORTED AS TWICE.
     Route: 048
     Dates: start: 20070608
  4. DACLIZUMAB [Suspect]
     Indication: DRUG USE FOR UNKNOWN INDICATION
     Route: 065
     Dates: start: 20070324, end: 20070413
  5. PREDNISONE [Suspect]
     Route: 065
     Dates: start: 20070522, end: 20070530
  6. PREDNISONE [Suspect]
     Route: 065
     Dates: start: 20070531, end: 20070621
  7. PREDNISONE [Suspect]
     Route: 065
     Dates: start: 20070622
  8. PROGRAF [Suspect]
     Route: 048
     Dates: start: 20070204
  9. SIMULECT [Suspect]
     Dosage: FREQUENCY REPORTED AS TWICE.
     Route: 042
     Dates: start: 20070206
  10. ATGAM [Suspect]
     Indication: DRUG USE FOR UNKNOWN INDICATION
     Route: 065
     Dates: start: 20070531, end: 20070607
  11. SOLU-MEDROL [Suspect]
     Indication: DRUG USE FOR UNKNOWN INDICATION
     Route: 042
     Dates: start: 20070518, end: 20070521
  12. LOSEC I.V. [Concomitant]
     Dates: start: 20070318
  13. VALCYTE [Concomitant]
     Dates: start: 20070402
  14. VALCYTE [Concomitant]
     Dates: start: 20070531, end: 20070619

REACTIONS (2)
  - PARVOVIRUS INFECTION [None]
  - TRANSPLANT REJECTION [None]
